FAERS Safety Report 19327932 (Version 1)
Quarter: 2021Q2

REPORT INFORMATION
  Report Type: Spontaneous
  Country: CN (occurrence: CN)
  Receive Date: 20210528
  Receipt Date: 20210528
  Transmission Date: 20210717
  Serious: Yes (Disabling)
  Sender: FDA-Public Use
  Company Number: CN-ASTRAZENECA-2021A458792

PATIENT
  Age: 60 Year
  Sex: Male
  Weight: 65 kg

DRUGS (1)
  1. CRESTOR [Suspect]
     Active Substance: ROSUVASTATIN CALCIUM
     Indication: CEREBROVASCULAR DISORDER
     Route: 048
     Dates: start: 20210417, end: 20210514

REACTIONS (1)
  - Myoglobin blood increased [Recovering/Resolving]

NARRATIVE: CASE EVENT DATE: 20210514
